FAERS Safety Report 4524014-6 (Version None)
Quarter: 2004Q4

REPORT INFORMATION
  Report Type: 
  Country: None (occurrence: None)
  Receive Date: 20041209
  Receipt Date: 20041201
  Transmission Date: 20050328
  Serious: Yes (Hospitalization)
  Sender: FDA-Public Use
  Company Number: 200410617BFR

PATIENT
  Age: 81 Year
  Sex: Female

DRUGS (3)
  1. CIPROFLOXACIN HCL [Suspect]
     Indication: URINARY TRACT INFECTION
     Dosage: 750 MG, TOTAL DAILY, ORAL
     Route: 048
     Dates: start: 20041005, end: 20041007
  2. SECTRAL [Concomitant]
  3. BOTOX [Concomitant]

REACTIONS (8)
  - ABASIA [None]
  - BALANCE DISORDER [None]
  - COORDINATION ABNORMAL [None]
  - DIPLOPIA [None]
  - GAIT DISTURBANCE [None]
  - NYSTAGMUS [None]
  - PHYSICAL EXAMINATION ABNORMAL [None]
  - SPEECH DISORDER [None]
